FAERS Safety Report 25951872 (Version 1)
Quarter: 2025Q4

REPORT INFORMATION
  Report Type: Spontaneous
  Country: CN (occurrence: CN)
  Receive Date: 20251023
  Receipt Date: 20251023
  Transmission Date: 20260119
  Serious: Yes (Hospitalization, Other)
  Sender: GLAXOSMITHKLINE
  Company Number: CN-GSK-CN2025GSK136283

PATIENT
  Age: 20 Year
  Sex: Female

DRUGS (12)
  1. LAMOTRIGINE [Suspect]
     Active Substance: LAMOTRIGINE
     Indication: Depression
     Dosage: UNK
  2. FLUOXETINE [Suspect]
     Active Substance: FLUOXETINE HYDROCHLORIDE
     Indication: Depressive symptom
     Dosage: UNK
  3. VENLAFAXINE [Suspect]
     Active Substance: VENLAFAXINE HYDROCHLORIDE
     Indication: Depressive symptom
     Dosage: UNK
  4. DULOXETINE [Suspect]
     Active Substance: DULOXETINE
     Indication: Depressive symptom
     Dosage: UNK
  5. MAPROTILINE [Suspect]
     Active Substance: MAPROTILINE
     Indication: Depressive symptom
     Dosage: UNK
  6. BUPROPION [Suspect]
     Active Substance: BUPROPION
     Indication: Depressive symptom
     Dosage: UNK
  7. LITHIUM [Suspect]
     Active Substance: LITHIUM
     Indication: Depressive symptom
     Dosage: UNK
  8. LITHIUM [Suspect]
     Active Substance: LITHIUM
     Indication: Bipolar disorder
  9. VALPROATE MAGNESIUM [Suspect]
     Active Substance: VALPROATE MAGNESIUM
     Indication: Depressive symptom
     Dosage: UNK
  10. QUETIAPINE [Suspect]
     Active Substance: QUETIAPINE
     Indication: Depressive symptom
     Dosage: UNK
  11. OLANZAPINE [Suspect]
     Active Substance: OLANZAPINE
     Indication: Depressive symptom
     Dosage: UNK
  12. CLOZAPINE [Suspect]
     Active Substance: CLOZAPINE
     Indication: Depressive symptom
     Dosage: UNK

REACTIONS (1)
  - Depression [Recovering/Resolving]
